FAERS Safety Report 4727410-7 (Version None)
Quarter: 2005Q3

REPORT INFORMATION
  Report Type: 
  Country: None (occurrence: None)
  Receive Date: 20050727
  Receipt Date: 20050727
  Transmission Date: 20060218
  Serious: Yes (Hospitalization)
  Sender: FDA-Public Use
  Company Number: None

PATIENT
  Age: 77 Year
  Sex: Male
  Weight: 67.1 kg

DRUGS (1)
  1. DIGOXIN [Suspect]
     Dosage: .625, 0.125MG, ORAL
     Route: 048

REACTIONS (1)
  - THERAPEUTIC AGENT TOXICITY [None]
